FAERS Safety Report 23564100 (Version 3)
Quarter: 2024Q1

REPORT INFORMATION
  Report Type: Spontaneous
  Country: US (occurrence: US)
  Receive Date: 20240226
  Receipt Date: 20240327
  Transmission Date: 20240410
  Serious: Yes (Other)
  Sender: FDA-Public Use
  Company Number: US-AMGEN-USASP2024036086

PATIENT
  Age: 55 Year
  Sex: Female

DRUGS (1)
  1. TAVNEOS [Suspect]
     Active Substance: AVACOPAN
     Indication: Anti-neutrophil cytoplasmic antibody positive vasculitis
     Dosage: UNK
     Route: 065
     Dates: start: 20221110

REACTIONS (16)
  - Renal pain [Recovering/Resolving]
  - Nephrolithiasis [Recovering/Resolving]
  - Pneumonia [Recovering/Resolving]
  - Ligament sprain [Not Recovered/Not Resolved]
  - Fall [Unknown]
  - Pain in extremity [Recovering/Resolving]
  - Limb injury [Recovering/Resolving]
  - Sputum discoloured [Unknown]
  - Pyrexia [Unknown]
  - Illness [Unknown]
  - Sinusitis [Unknown]
  - Wheezing [Unknown]
  - Vomiting [Unknown]
  - Fatigue [Unknown]
  - Product dose omission issue [Unknown]
  - Cough [Unknown]

NARRATIVE: CASE EVENT DATE: 20240101
